FAERS Safety Report 24565257 (Version 2)
Quarter: 2024Q4

REPORT INFORMATION
  Report Type: Spontaneous
  Country: US (occurrence: US)
  Receive Date: 20241030
  Receipt Date: 20241106
  Transmission Date: 20250115
  Serious: No
  Sender: SANDOZ
  Company Number: US-SANDOZ-SDZ2024US091244

PATIENT
  Age: 64 Year
  Sex: Female
  Weight: 70.29 kg

DRUGS (1)
  1. COMBIPATCH [Suspect]
     Active Substance: ESTRADIOL\NORETHINDRONE ACETATE
     Indication: Menopausal symptoms
     Dosage: 0.05/0.14 MG, EVERY 3 TO 4 DAYS (TWICE A WEEK);
     Route: 062
     Dates: start: 20240803

REACTIONS (3)
  - Therapeutic product effect incomplete [Recovered/Resolved]
  - Product adhesion issue [Recovered/Resolved]
  - Product storage error [Recovered/Resolved]

NARRATIVE: CASE EVENT DATE: 20241001
